FAERS Safety Report 19486107 (Version 1)
Quarter: 2021Q3

REPORT INFORMATION
  Report Type: Spontaneous
  Country: CA (occurrence: CA)
  Receive Date: 20210702
  Receipt Date: 20210702
  Transmission Date: 20211014
  Serious: Yes (Death, Other)
  Sender: FDA-Public Use
  Company Number: CA-PFIZER INC-2020443227

PATIENT
  Age: 86 Year
  Sex: Male
  Weight: 72 kg

DRUGS (1)
  1. VYNDAQEL [Suspect]
     Active Substance: TAFAMIDIS MEGLUMINE
     Indication: CARDIAC AMYLOIDOSIS
     Dosage: 80 MG, DAILY
     Route: 048
     Dates: start: 20200123

REACTIONS (3)
  - Death [Fatal]
  - Pain [Unknown]
  - Fall [Unknown]

NARRATIVE: CASE EVENT DATE: 2020
